FAERS Safety Report 7542898-4 (Version None)
Quarter: 2011Q2

REPORT INFORMATION
  Report Type: 
  Country: None (occurrence: None)
  Receive Date: 20110613
  Receipt Date: 20110531
  Transmission Date: 20111010
  Serious: Yes (Hospitalization)
  Sender: FDA-Public Use
  Company Number: PHHY2011IT24601

PATIENT
  Sex: Male

DRUGS (3)
  1. TASIGNA [Suspect]
     Dosage: UNK
     Dates: start: 20110422
  2. TASIGNA [Suspect]
     Indication: CHRONIC MYELOID LEUKAEMIA
     Dosage: 800 MG, UNK
     Route: 048
     Dates: start: 20090901, end: 20110315
  3. ONCO-CARBIDE [Concomitant]
     Dosage: UNK
     Dates: end: 20110420

REACTIONS (2)
  - CAROTID ARTERY STENOSIS [None]
  - CAROTID ARTERY OCCLUSION [None]
